FAERS Safety Report 24350850 (Version 1)
Quarter: 2024Q3

REPORT INFORMATION
  Report Type: Spontaneous
  Country: US (occurrence: US)
  Receive Date: 20240923
  Receipt Date: 20240923
  Transmission Date: 20241017
  Serious: Yes (Hospitalization)
  Sender: TEVA
  Company Number: US-TEVA-VS-3243846

PATIENT
  Age: 52 Year
  Sex: Male

DRUGS (1)
  1. PROPYLTHIOURACIL [Suspect]
     Active Substance: PROPYLTHIOURACIL
     Indication: Thyroid disorder
     Route: 065

REACTIONS (4)
  - Hospitalisation [Unknown]
  - Fatigue [Unknown]
  - Dyspnoea [Unknown]
  - Thyroid disorder [Unknown]
